FAERS Safety Report 15702503 (Version 1)
Quarter: 2018Q4

REPORT INFORMATION
  Report Type: Spontaneous
  Country: US (occurrence: US)
  Receive Date: 20181126
  Receipt Date: 20181126
  Transmission Date: 20190205
  Serious: Yes (Hospitalization)
  Sender: FDA-Public Use
  Company Number: None

PATIENT
  Age: 10 Year
  Sex: Male
  Weight: 31.4 kg

DRUGS (5)
  1. CYTARABINE. [Suspect]
     Active Substance: CYTARABINE
     Dates: end: 20181030
  2. VINCRISTINE SULFATE. [Suspect]
     Active Substance: VINCRISTINE SULFATE
     Dates: end: 20181113
  3. DAUNORUBICIN [Suspect]
     Active Substance: DAUNORUBICIN
  4. ONCASPAR [Suspect]
     Active Substance: PEGASPARGASE
     Dates: end: 20181102
  5. METHOTREXATE. [Suspect]
     Active Substance: METHOTREXATE
     Dates: end: 20181106

REACTIONS (6)
  - Apnoea [None]
  - Cerebral ischaemia [None]
  - Hypofibrinogenaemia [None]
  - Coagulopathy [None]
  - Neurologic neglect syndrome [None]
  - Seizure [None]

NARRATIVE: CASE EVENT DATE: 20181116
